FAERS Safety Report 9894337 (Version 1)
Quarter: 2014Q1

REPORT INFORMATION
  Report Type: Spontaneous
  Country: BR (occurrence: BR)
  Receive Date: 20140213
  Receipt Date: 20140213
  Transmission Date: 20141002
  Serious: Yes (Death, Other)
  Sender: FDA-Public Use
  Company Number: PHHY2014BR017611

PATIENT
  Sex: Female

DRUGS (1)
  1. RITALINA [Suspect]
     Dosage: UNK

REACTIONS (1)
  - Neoplasm malignant [Fatal]
